FAERS Safety Report 22149230 (Version 1)
Quarter: 2023Q1

REPORT INFORMATION
  Report Type: Spontaneous
  Country: US (occurrence: US)
  Receive Date: 20230329
  Receipt Date: 20230329
  Transmission Date: 20230417
  Serious: No
  Sender: FDA-Public Use
  Company Number: US-drreddys-SPO/USA/23/0160295

PATIENT
  Age: 66 Year
  Sex: Female

DRUGS (1)
  1. LAMOTRIGINE [Suspect]
     Active Substance: LAMOTRIGINE
     Indication: Product used for unknown indication
     Dates: start: 20221001

REACTIONS (4)
  - Dizziness [Unknown]
  - Diplopia [Unknown]
  - Balance disorder [Unknown]
  - Coordination abnormal [Unknown]
